FAERS Safety Report 4736215-2 (Version None)
Quarter: 2005Q3

REPORT INFORMATION
  Report Type: 
  Country: None (occurrence: None)
  Receive Date: 20050808
  Receipt Date: 20050728
  Transmission Date: 20060218
  Serious: Yes (Other)
  Sender: FDA-Public Use
  Company Number: PHBS2005BR11093

PATIENT
  Sex: Female

DRUGS (1)
  1. CATAFLAM [Suspect]
     Dosage: 75 MG, ONCE/SINGLE
     Route: 030
     Dates: start: 20050723, end: 20050723

REACTIONS (4)
  - APPLICATION SITE DISCOLOURATION [None]
  - APPLICATION SITE PAIN [None]
  - INDURATION [None]
  - VASCULITIS [None]
